FAERS Safety Report 24088206 (Version 1)
Quarter: 2024Q3

REPORT INFORMATION
  Report Type: Other
  Country: CN (occurrence: CN)
  Receive Date: 20240715
  Receipt Date: 20240715
  Transmission Date: 20241017
  Serious: Yes (Death)
  Sender: BIONPHARMA
  Company Number: CN-Bion-013433

PATIENT
  Age: 53 Year
  Sex: Male

DRUGS (2)
  1. DEXAMETHASONE [Suspect]
     Active Substance: DEXAMETHASONE
     Indication: Precursor B-lymphoblastic lymphoma
  2. CYCLOPHOSPHAMIDE [Concomitant]
     Active Substance: CYCLOPHOSPHAMIDE
     Indication: Precursor B-lymphoblastic lymphoma

REACTIONS (1)
  - Drug intolerance [Fatal]
